FAERS Safety Report 7418072-9 (Version None)
Quarter: 2011Q2

REPORT INFORMATION
  Report Type: 
  Country: None (occurrence: None)
  Receive Date: 20110415
  Receipt Date: 20110406
  Transmission Date: 20111010
  Serious: Yes (Hospitalization, Other)
  Sender: FDA-Public Use
  Company Number: US-BAXTER-2011BH008965

PATIENT
  Sex: Female

DRUGS (1)
  1. DIANEAL PD-2 W/ DEXTROSE 1.5% [Suspect]
     Indication: PERITONEAL DIALYSIS
     Route: 033
     Dates: end: 20110327

REACTIONS (5)
  - PERITONITIS BACTERIAL [None]
  - FUNGAL PERITONITIS [None]
  - CATHETER SITE INFECTION [None]
  - ABDOMINAL HERNIA [None]
  - PERITONITIS [None]
